FAERS Safety Report 4722354-9 (Version None)
Quarter: 2005Q3

REPORT INFORMATION
  Report Type: 
  Country: None (occurrence: None)
  Receive Date: 20050722
  Receipt Date: 20050307
  Transmission Date: 20060218
  Serious: No
  Sender: FDA-Public Use
  Company Number: US-GLAXOSMITHKLINE-A0548621A

PATIENT
  Age: 75 Year
  Sex: Female

DRUGS (6)
  1. AVANDIA [Suspect]
     Dosage: 30MG PER DAY
     Route: 048
     Dates: start: 20050201
  2. GLUCOTROL [Concomitant]
  3. FORTAMET [Concomitant]
  4. NORVASC [Concomitant]
  5. TRICOR [Concomitant]
  6. ZOCOR [Concomitant]

REACTIONS (3)
  - BLOOD GLUCOSE INCREASED [None]
  - CONSTIPATION [None]
  - DIARRHOEA [None]
